FAERS Safety Report 8398378 (Version 2)
Quarter: 2014Q4

REPORT INFORMATION
  Report Type: Spontaneous
  Country: US (occurrence: US)
  Receive Date: 20120209
  Receipt Date: 20141014
  Transmission Date: 20150529
  Serious: Yes (Other)
  Sender: FDA-Public Use
  Company Number: US-ROCHE-792798

PATIENT
  Age: 15 Year
  Sex: Male
  Weight: 70.37 kg

DRUGS (3)
  1. ACCUTANE [Suspect]
     Active Substance: ISOTRETINOIN
     Route: 048
     Dates: start: 2001, end: 2002
  2. ACCUTANE [Suspect]
     Active Substance: ISOTRETINOIN
     Indication: ACNE CYSTIC
     Route: 048
     Dates: start: 19981201, end: 20000531
  3. ACCUTANE [Suspect]
     Active Substance: ISOTRETINOIN
     Route: 048
     Dates: start: 1996, end: 1998

REACTIONS (11)
  - Inflammatory bowel disease [Unknown]
  - Lip dry [Unknown]
  - Blood iron increased [Unknown]
  - Attention deficit/hyperactivity disorder [Unknown]
  - Dry skin [Unknown]
  - Mental disorder [Unknown]
  - Irritable bowel syndrome [Unknown]
  - Blood triglycerides increased [Unknown]
  - Rheumatoid arthritis [Unknown]
  - Depression [Unknown]
  - Blood cholesterol increased [Unknown]

NARRATIVE: CASE EVENT DATE: 1997
